FAERS Safety Report 21381491 (Version 1)
Quarter: 2022Q3

REPORT INFORMATION
  Report Type: Report from Study
  Country: NL (occurrence: NL)
  Receive Date: 20220927
  Receipt Date: 20220927
  Transmission Date: 20221027
  Serious: Yes (Hospitalization)
  Sender: FDA-Public Use
  Company Number: NL-ABBVIE-4130460

PATIENT
  Age: 66 Year
  Sex: Male

DRUGS (4)
  1. CARBIDOPA\LEVODOPA [Suspect]
     Active Substance: CARBIDOPA\LEVODOPA
     Indication: Parkinson^s disease
     Dosage: MD:8.0ML; CD:4.1ML/H; ED:2.0ML; CND:2.4ML/H; END:1.0ML;/REMAINS AT 24 HOURS.
  2. CARBIDOPA\LEVODOPA [Suspect]
     Active Substance: CARBIDOPA\LEVODOPA
     Dosage: DURATION TEXT: REMAINS AT 24 HOURS.
     Route: 050
     Dates: start: 20220829
  3. POLYETHYLENE GLYCOLS [Concomitant]
     Active Substance: POLYETHYLENE GLYCOLS
     Indication: Product used for unknown indication
     Dosage: 4 TO 8 SACHETS PER DAY
     Route: 048
  4. SINEMET [Concomitant]
     Active Substance: CARBIDOPA\LEVODOPA
     Indication: Product used for unknown indication
     Dosage: TIME INTERVAL: 0.125 DAYS: 8 INTO 2 PER DAY. STOP WITH THE START OF DUODOPA
     Route: 048

REACTIONS (4)
  - Blood pressure abnormal [Not Recovered/Not Resolved]
  - Suture insertion [Not Recovered/Not Resolved]
  - Underdose [Not Recovered/Not Resolved]
  - Syncope [Not Recovered/Not Resolved]

NARRATIVE: CASE EVENT DATE: 20220901
